FAERS Safety Report 8865608 (Version 1)
Quarter: 2012Q4

REPORT INFORMATION
  Report Type: 
  Country: US (occurrence: US)
  Receive Date: 20121024
  Receipt Date: 20121024
  Transmission Date: 20130627
  Serious: No
  Sender: FDA-Public Use
  Company Number: US-AMGEN-USASP2012004015

PATIENT
  Age: 74 Year
  Sex: Female
  Weight: 76.19 kg

DRUGS (11)
  1. ENBREL [Suspect]
     Indication: PRODUCT USED FOR UNKNOWN INDICATION
     Dosage: 50 mg, qwk
     Route: 058
  2. PLAQUENIL                          /00072602/ [Concomitant]
     Dosage: 200 mg, UNK
  3. ASPIRINA ADULTOS [Concomitant]
     Dosage: 81 mg, UNK
  4. CALCIUM D                          /00944201/ [Concomitant]
     Dosage: UNK
  5. VITAMIN D /00107901/ [Concomitant]
     Dosage: UNK
  6. FOLIC ACID [Concomitant]
     Dosage: 1 mg, UNK
  7. LOVASTATIN [Concomitant]
     Dosage: 10 mg, UNK
  8. NEXIUM                             /01479302/ [Concomitant]
     Dosage: 20 mg, UNK
  9. METHOTREXATE [Concomitant]
     Dosage: 1 g, UNK
  10. HYDROCHLOROTHIAZIDE [Concomitant]
     Dosage: 12.5 mg, UNK
  11. VITAMIN C                          /00008001/ [Concomitant]
     Dosage: 250 mg, UNK

REACTIONS (6)
  - Toothache [Recovered/Resolved]
  - Oedema peripheral [Unknown]
  - Neuralgia [Recovered/Resolved]
  - Ear pain [Recovered/Resolved]
  - Headache [Recovered/Resolved]
  - Bronchitis [Unknown]
